FAERS Safety Report 9309435 (Version 1)
Quarter: 2013Q2

REPORT INFORMATION
  Report Type: Spontaneous
  Country: US (occurrence: US)
  Receive Date: 20130525
  Receipt Date: 20130525
  Transmission Date: 20140414
  Serious: No
  Sender: FDA-Public Use
  Company Number: US-BRISTOL-MYERS SQUIBB COMPANY-18584953

PATIENT
  Age: 67 Year
  Sex: Male
  Weight: 97.05 kg

DRUGS (4)
  1. BYDUREON [Suspect]
     Indication: TYPE 2 DIABETES MELLITUS
     Route: 058
     Dates: start: 20121010, end: 20121113
  2. METFORMIN [Concomitant]
     Route: 048
  3. GLIMEPIRIDE [Concomitant]
     Route: 048
  4. ASPIRIN [Concomitant]
     Route: 048

REACTIONS (2)
  - Urticaria [Recovering/Resolving]
  - Injection site nodule [Unknown]
